FAERS Safety Report 20437159 (Version 3)
Quarter: 2022Q3

REPORT INFORMATION
  Report Type: Spontaneous
  Country: JP (occurrence: JP)
  Receive Date: 20220207
  Receipt Date: 20220715
  Transmission Date: 20221027
  Serious: No
  Sender: FDA-Public Use
  Company Number: JP-GLAXOSMITHKLINE-JP2022JPN018349

PATIENT

DRUGS (4)
  1. SOTROVIMAB [Suspect]
     Active Substance: SOTROVIMAB
     Indication: COVID-19
     Dosage: 500 MG PER DAY
     Route: 042
     Dates: start: 20220128, end: 20220128
  2. HERBALS [Suspect]
     Active Substance: HERBALS
     Indication: COVID-19
     Dosage: 7.5 G PER DAY
     Route: 048
     Dates: start: 20220126, end: 20220202
  3. CALONAL [Suspect]
     Active Substance: ACETAMINOPHEN
     Indication: COVID-19
     Dosage: 400 MG PER DAY
     Route: 048
     Dates: start: 20220126, end: 20220129
  4. DEQUALINIUM CHLORIDE [Suspect]
     Active Substance: DEQUALINIUM CHLORIDE
     Indication: COVID-19
     Dosage: 0.25 MG PER DOSE
     Dates: start: 20220126, end: 20220127

REACTIONS (1)
  - Exposure during pregnancy [Unknown]
